FAERS Safety Report 7315859-8 (Version None)
Quarter: 2011Q1

REPORT INFORMATION
  Report Type: 
  Country: None (occurrence: None)
  Receive Date: 20110225
  Receipt Date: 20110215
  Transmission Date: 20110831
  Serious: Yes (Other)
  Sender: FDA-Public Use
  Company Number: US-ROCHE-734157

PATIENT
  Sex: Male
  Weight: 55.8 kg

DRUGS (5)
  1. ACCUTANE [Suspect]
     Route: 065
     Dates: start: 20050401
  2. ACCUTANE [Suspect]
     Dosage: DOSE DECREASED
     Route: 065
     Dates: start: 20050715, end: 20050825
  3. MINOCYCLINE HCL [Concomitant]
     Indication: ACNE
     Dosage: LAST DOSE PRIOR TO SAE 22 MAR 2005
     Dates: start: 20031022
  4. ACCUTANE [Suspect]
     Dosage: 40 MG ON ODD DAY, AND 80 MG ON EVEN DAY FOR 1 MONTH
     Route: 065
     Dates: start: 20050610, end: 20050710
  5. ACCUTANE [Suspect]
     Route: 065
     Dates: start: 20060101, end: 20060601

REACTIONS (11)
  - CROHN'S DISEASE [None]
  - COLITIS ULCERATIVE [None]
  - CARDIAC DISORDER [None]
  - GASTROINTESTINAL INJURY [None]
  - ANAL ABSCESS [None]
  - BLOOD TRIGLYCERIDES INCREASED [None]
  - DEPRESSION [None]
  - INFLAMMATORY BOWEL DISEASE [None]
  - ANAL FISTULA [None]
  - BLOOD CHOLESTEROL INCREASED [None]
  - HERNIA [None]
